FAERS Safety Report 5070372-6 (Version None)
Quarter: 2006Q3

REPORT INFORMATION
  Report Type: 
  Country: None (occurrence: None)
  Receive Date: 20060731
  Receipt Date: 20060717
  Transmission Date: 20061208
  Serious: Yes (Death)
  Sender: FDA-Public Use
  Company Number: 2006EU002097

PATIENT
  Age: 39 Year
  Sex: Male

DRUGS (3)
  1. PROGRAF [Suspect]
     Indication: RENAL TRANSPLANT
     Dates: start: 20010401
  2. MYCOPHENOLATE MOFETIL [Suspect]
     Indication: RENAL TRANSPLANT
     Dates: start: 20010401
  3. METHYLPREDNISOLONE [Suspect]
     Indication: RENAL TRANSPLANT
     Dates: start: 20010401

REACTIONS (21)
  - BACK PAIN [None]
  - BLADDER DISORDER [None]
  - COMPLICATIONS OF TRANSPLANTED KIDNEY [None]
  - HAEMATOMA [None]
  - INTRA-ABDOMINAL HAEMORRHAGE [None]
  - KIDNEY TRANSPLANT REJECTION [None]
  - LYMPHADENOPATHY [None]
  - METASTASES TO BONE [None]
  - METASTASES TO BONE MARROW [None]
  - METASTASES TO HEART [None]
  - METASTASES TO KIDNEY [None]
  - METASTASES TO LIVER [None]
  - METASTASES TO LUNG [None]
  - METASTASES TO SPINE [None]
  - METASTASES TO SPLEEN [None]
  - MUSCULAR WEAKNESS [None]
  - PELVIC MASS [None]
  - PROSTATE CANCER [None]
  - SMALL CELL CARCINOMA [None]
  - SPLENIC RUPTURE [None]
  - URETHRAL HAEMORRHAGE [None]
